FAERS Safety Report 24037161 (Version 1)
Quarter: 2024Q3

REPORT INFORMATION
  Report Type: Report from Study
  Country: JP (occurrence: JP)
  Receive Date: 20240701
  Receipt Date: 20240701
  Transmission Date: 20241017
  Serious: Yes (Hospitalization, Other)
  Sender: AMGEN
  Company Number: JP-KISSEI-TV20240489_P_1

PATIENT
  Age: 73 Year
  Sex: Female
  Weight: 55.5 kg

DRUGS (26)
  1. AVACOPAN [Suspect]
     Active Substance: AVACOPAN
     Indication: Granulomatosis with polyangiitis
     Dosage: 30 MILLIGRAM, Q12H
     Route: 048
     Dates: start: 20231024
  2. PREDNISOLONE [Concomitant]
     Active Substance: PREDNISOLONE
     Indication: Granulomatosis with polyangiitis
     Dosage: 7.5 MILLIGRAM, QD
     Route: 048
     Dates: end: 20231121
  3. PREDNISOLONE [Concomitant]
     Active Substance: PREDNISOLONE
     Dosage: 7 MILLIGRAM, QD
     Route: 048
     Dates: start: 20231122
  4. SULFAMETHOXAZOLE\TRIMETHOPRIM [Concomitant]
     Active Substance: SULFAMETHOXAZOLE\TRIMETHOPRIM
     Indication: Antifungal prophylaxis
     Dosage: 480 MILLIGRAM, QD
     Route: 048
  5. VORICONAZOLE [Concomitant]
     Active Substance: VORICONAZOLE
     Indication: Antifungal prophylaxis
     Dosage: 200 MILLIGRAM, QD
     Route: 048
     Dates: end: 20240123
  6. VORICONAZOLE [Concomitant]
     Active Substance: VORICONAZOLE
     Dosage: 300 MILLIGRAM, QD
     Route: 048
     Dates: start: 20240124
  7. ROSUVASTATIN [Concomitant]
     Active Substance: ROSUVASTATIN
     Indication: Product used for unknown indication
     Dosage: UNK
     Route: 048
  8. FUROSEMIDE [Concomitant]
     Active Substance: FUROSEMIDE
     Indication: Product used for unknown indication
     Dosage: UNK
     Route: 048
  9. SODIUM FERROUS CITRATE [Concomitant]
     Active Substance: SODIUM FERROUS CITRATE
     Indication: Anaemia
     Dosage: 50 MILLIGRAM, QD
     Route: 048
     Dates: end: 20240122
  10. SODIUM FERROUS CITRATE [Concomitant]
     Active Substance: SODIUM FERROUS CITRATE
     Dosage: 100 MILLIGRAM, QD
     Route: 048
     Dates: start: 20240123
  11. SPIRONOLACTONE [Concomitant]
     Active Substance: SPIRONOLACTONE
     Indication: Product used for unknown indication
     Dosage: UNK
     Route: 048
  12. SAMSCA [Concomitant]
     Active Substance: TOLVAPTAN
     Indication: Product used for unknown indication
     Dosage: UNK
     Route: 048
  13. EDOXABAN TOSYLATE [Concomitant]
     Active Substance: EDOXABAN TOSYLATE
     Indication: Product used for unknown indication
     Dosage: UNK
     Route: 048
     Dates: end: 2024
  14. TEPRENONE [Concomitant]
     Active Substance: TEPRENONE
     Route: 048
  15. CARBOCYSTEINE [Concomitant]
     Active Substance: CARBOCYSTEINE
     Indication: Product used for unknown indication
     Dosage: UNK
     Route: 048
  16. FUDOSTEINE [Concomitant]
     Active Substance: FUDOSTEINE
     Route: 048
  17. PREGABALIN [Concomitant]
     Active Substance: PREGABALIN
     Indication: Product used for unknown indication
     Dosage: UNK
     Route: 048
  18. URSODIOL [Concomitant]
     Active Substance: URSODIOL
     Route: 048
  19. BISOPROLOL [Concomitant]
     Active Substance: BISOPROLOL\BISOPROLOL FUMARATE
     Indication: Product used for unknown indication
     Dosage: FORM OF ADMINISTRATION: TAPE
     Route: 062
  20. RISEDRONATE SODIUM HEMI-PENTAHYDRATE [Concomitant]
     Active Substance: RISEDRONATE SODIUM HEMI-PENTAHYDRATE
     Route: 048
     Dates: end: 20231024
  21. DENOSUMAB [Concomitant]
     Active Substance: DENOSUMAB
     Dosage: GENETICAL RECOMBINATION
     Route: 058
     Dates: start: 20231024
  22. GLYCOPYRRONIUM\INDACATEROL [Concomitant]
     Active Substance: GLYCOPYRRONIUM\INDACATEROL
     Route: 055
  23. CALCIUM CARBONATE\CHOLECALCIFEROL\MAGNESIUM CARBONATE [Concomitant]
     Active Substance: CALCIUM CARBONATE\CHOLECALCIFEROL\MAGNESIUM CARBONATE
     Indication: Product used for unknown indication
     Dosage: UNK
     Route: 048
     Dates: start: 20231024
  24. LINAGLIPTIN [Concomitant]
     Active Substance: LINAGLIPTIN
     Dosage: UNK
     Route: 048
     Dates: end: 20231024
  25. LINAGLIPTIN [Concomitant]
     Active Substance: LINAGLIPTIN
     Dosage: UNK
     Route: 048
     Dates: start: 20240418
  26. EMPAGLIFLOZIN\LINAGLIPTIN [Concomitant]
     Active Substance: EMPAGLIFLOZIN\LINAGLIPTIN
     Indication: Product used for unknown indication
     Dosage: UNK
     Route: 048
     Dates: start: 20231025, end: 20240417

REACTIONS (4)
  - Anaemia [Recovered/Resolved]
  - Gastric cancer [Recovered/Resolved]
  - Diabetes mellitus [Unknown]
  - Hepatic function abnormal [Unknown]

NARRATIVE: CASE EVENT DATE: 20231219
